FAERS Safety Report 8341486-X (Version None)
Quarter: 2012Q2

REPORT INFORMATION
  Report Type: 
  Country: None (occurrence: None)
  Receive Date: 20120507
  Receipt Date: 20120430
  Transmission Date: 20120825
  Serious: Yes (Hospitalization)
  Sender: FDA-Public Use
  Company Number: PHHO2012DE005854

PATIENT
  Sex: Female
  Weight: 62.2 kg

DRUGS (5)
  1. OMEPRAZOLE [Concomitant]
     Indication: GASTRITIS
     Dosage: 20 MGX2, UNK
     Route: 048
     Dates: start: 20120314
  2. METHOTREXATE [Concomitant]
     Indication: JUVENILE ARTHRITIS
     Dosage: 15 MG, QW
     Route: 048
     Dates: start: 20110930
  3. IBUPROFEN TABLETS [Suspect]
     Dosage: UNK
     Dates: start: 20120131, end: 20120201
  4. ILARIS [Suspect]
     Indication: JUVENILE ARTHRITIS
     Dosage: 249 MG, UNK
     Dates: start: 20100803
  5. PANTOPRAZOLE [Concomitant]
     Indication: GASTRITIS
     Dosage: 20 MGX1, UNK
     Route: 048
     Dates: start: 20120414

REACTIONS (5)
  - JUVENILE ARTHRITIS [None]
  - DRUG RASH WITH EOSINOPHILIA AND SYSTEMIC SYMPTOMS [None]
  - CONDITION AGGRAVATED [None]
  - PAIN [None]
  - RASH [None]
